FAERS Safety Report 14152044 (Version 2)
Quarter: 2017Q4

REPORT INFORMATION
  Report Type: Spontaneous
  Country: AR (occurrence: AR)
  Receive Date: 20171102
  Receipt Date: 20171116
  Transmission Date: 20180321
  Serious: Yes (Death, Hospitalization, Other)
  Sender: FDA-Public Use
  Company Number: PHHY2017AR161474

PATIENT
  Age: 83 Year
  Sex: Female

DRUGS (6)
  1. TASIGNA [Suspect]
     Active Substance: NILOTINIB
     Dosage: UNK UNK, QD
     Route: 065
     Dates: start: 20111122
  2. TASIGNA [Suspect]
     Active Substance: NILOTINIB
     Indication: CHRONIC MYELOID LEUKAEMIA
     Dosage: 200 MG, QD
     Route: 065
     Dates: start: 20110114
  3. TASIGNA [Suspect]
     Active Substance: NILOTINIB
     Dosage: 400 MG, QD
     Route: 065
  4. TASIGNA [Suspect]
     Active Substance: NILOTINIB
     Dosage: 800 MG, QD
     Route: 048
     Dates: start: 20110905, end: 20110920
  5. FERRANIN [Concomitant]
     Indication: PRODUCT USED FOR UNKNOWN INDICATION
     Dosage: 100 MG, QD
     Route: 065
  6. TASIGNA [Suspect]
     Active Substance: NILOTINIB
     Dosage: 600 MG, QD
     Route: 065

REACTIONS (15)
  - Hypotension [Unknown]
  - Respiratory tract infection [Recovered/Resolved]
  - Iron deficiency [Unknown]
  - Cardiac arrest [Fatal]
  - Hydronephrosis [Unknown]
  - Altered state of consciousness [Unknown]
  - General physical health deterioration [Unknown]
  - Therapeutic response decreased [Unknown]
  - Haemoglobin decreased [Unknown]
  - Upper respiratory tract congestion [Unknown]
  - Somnolence [Unknown]
  - Neutropenia [Unknown]
  - Rhinorrhoea [Unknown]
  - Leukopenia [Unknown]
  - Haematocrit decreased [Unknown]

NARRATIVE: CASE EVENT DATE: 2013
